FAERS Safety Report 16339802 (Version 1)
Quarter: 2019Q2

REPORT INFORMATION
  Report Type: Report from Study
  Country: CA (occurrence: CA)
  Receive Date: 20190521
  Receipt Date: 20190521
  Transmission Date: 20190711
  Serious: Yes (Life-Threatening)
  Sender: FDA-Public Use
  Company Number: CA-ACTELION-A-US2019-190267

PATIENT
  Sex: Female
  Weight: 66.85 kg

DRUGS (14)
  1. PANTOPRAZOLE [Concomitant]
     Active Substance: PANTOPRAZOLE
     Dosage: 40 MG, QAM
  2. MULTIVITAMIN [Concomitant]
     Active Substance: VITAMINS
     Dosage: UNK, QD
  3. APO-CYCLOBENZAPRINE [Concomitant]
     Active Substance: CYCLOBENZAPRINE
     Dosage: 10 MG, PRN
  4. CIPRALEX [Concomitant]
     Active Substance: ESCITALOPRAM OXALATE
     Dosage: 10 MG, QD
  5. COLCHICINE. [Concomitant]
     Active Substance: COLCHICINE
     Dosage: UNK, QD
  6. ESTROGEL [Concomitant]
     Active Substance: ESTRADIOL
     Dosage: UNK, 0.06% QD
  7. PREDNISONE. [Concomitant]
     Active Substance: PREDNISONE
     Dosage: 20 MG
  8. PRO-BISOPROLOL [Concomitant]
     Dosage: UNK, QAM
  9. PREGABALIN. [Concomitant]
     Active Substance: PREGABALIN
     Dosage: 150 MG, BID
  10. ATIVAN [Concomitant]
     Active Substance: LORAZEPAM
     Dosage: 1 MG, QPM
  11. ADCIRCA [Concomitant]
     Active Substance: TADALAFIL
  12. OPSUMIT [Suspect]
     Active Substance: MACITENTAN
     Indication: PULMONARY ARTERIAL HYPERTENSION
     Dosage: 10 MG
     Route: 048
     Dates: start: 20180608
  13. D-TABS [Concomitant]
     Active Substance: CHOLECALCIFEROL
     Dosage: 10000 UNK, Q1WEEK
  14. CLONAZEPAM. [Concomitant]
     Active Substance: CLONAZEPAM
     Dosage: 0.25 MG

REACTIONS (1)
  - Hospice care [Not Recovered/Not Resolved]
